FAERS Safety Report 6061695-2 (Version None)
Quarter: 2009Q1

REPORT INFORMATION
  Report Type: 
  Country: None (occurrence: None)
  Receive Date: 20090202
  Receipt Date: 20090122
  Transmission Date: 20090719
  Serious: Yes (Disabling, Other)
  Sender: FDA-Public Use
  Company Number: GB-PFIZER INC-2009159746

PATIENT

DRUGS (4)
  1. CHAMPIX [Suspect]
     Indication: SMOKING CESSATION THERAPY
     Route: 048
     Dates: start: 20080214
  2. ACETYLSALICYLIC ACID [Concomitant]
     Indication: PROPHYLAXIS
     Dosage: 75 MG, 1X/DAY
     Route: 048
     Dates: start: 20041202
  3. ATORVASTATIN CALCIUM [Concomitant]
     Indication: PROPHYLAXIS
     Dosage: 10 MG, 1X/DAY
     Route: 048
     Dates: start: 20041202
  4. ATORVASTATIN CALCIUM [Concomitant]
     Indication: CARDIAC DISORDER

REACTIONS (3)
  - BALANCE DISORDER [None]
  - CEREBROVASCULAR ACCIDENT [None]
  - GAIT DISTURBANCE [None]
